FAERS Safety Report 9496480 (Version 1)
Quarter: 2013Q3

REPORT INFORMATION
  Report Type: Spontaneous
  Country: US (occurrence: None)
  Receive Date: 20130829
  Receipt Date: 20130829
  Transmission Date: 20140515
  Serious: No
  Sender: FDA-Public Use
  Company Number: B0918554A

PATIENT
  Age: 51 Year
  Sex: Male

DRUGS (3)
  1. LAMIVUDINE-HIV [Suspect]
     Indication: HIV INFECTION
  2. ZIDOVUDINE [Suspect]
     Indication: HIV INFECTION
  3. ABACAVIR SULPHATE [Suspect]
     Indication: HIV INFECTION

REACTIONS (1)
  - Lipodystrophy acquired [None]
